FAERS Safety Report 10804671 (Version 1)
Quarter: 2015Q1

REPORT INFORMATION
  Report Type: Report from Study
  Country: US (occurrence: US)
  Receive Date: 20150217
  Receipt Date: 20150217
  Transmission Date: 20150721
  Serious: No
  Sender: FDA-Public Use
  Company Number: US-ABBVIE-14K-163-1267298-00

PATIENT
  Age: 50 Year
  Sex: Female

DRUGS (1)
  1. HUMIRA [Suspect]
     Active Substance: ADALIMUMAB
     Indication: RHEUMATOID ARTHRITIS
     Route: 058
     Dates: start: 20130812, end: 20140724

REACTIONS (6)
  - Injection site rash [Unknown]
  - Injection site erythema [Unknown]
  - Pyrexia [Unknown]
  - Injection site extravasation [Unknown]
  - Type IV hypersensitivity reaction [Unknown]
  - Nausea [Unknown]

NARRATIVE: CASE EVENT DATE: 20140724
